FAERS Safety Report 8344896-X (Version None)
Quarter: 2012Q2

REPORT INFORMATION
  Report Type: 
  Country: None (occurrence: None)
  Receive Date: 20120508
  Receipt Date: 20071217
  Transmission Date: 20120825
  Serious: Yes (Other)
  Sender: FDA-Public Use
  Company Number: US-TEVA-US021957

PATIENT

DRUGS (1)
  1. TIAGABINE HYDROCHLORIDE [Suspect]
     Indication: ANXIETY
     Dosage: 12 TO 40 MG
     Route: 048

REACTIONS (1)
  - ENCEPHALOPATHY [None]
